APPROVED DRUG PRODUCT: GABAPENTIN
Active Ingredient: GABAPENTIN
Strength: 400MG
Dosage Form/Route: TABLET;ORAL
Application: A076017 | Product #003 | TE Code: AB1
Applicant: IVAX PHARMACEUTICALS INC SUB TEVA PHARMACEUTICALS USA
Approved: Apr 28, 2004 | RLD: No | RS: No | Type: RX